FAERS Safety Report 4373152-X (Version None)
Quarter: 2004Q2

REPORT INFORMATION
  Report Type: 
  Country: None (occurrence: None)
  Receive Date: 20040603
  Receipt Date: 20040518
  Transmission Date: 20050107
  Serious: Yes (Hospitalization)
  Sender: FDA-Public Use
  Company Number: 194473

PATIENT
  Age: 60 Year
  Sex: Female

DRUGS (9)
  1. AVONEX [Suspect]
     Indication: MULTIPLE SCLEROSIS
     Dosage: 30 MCG QW IM
     Route: 030
     Dates: start: 20000225
  2. PROVIGIL [Concomitant]
  3. PREMARIN [Concomitant]
  4. XANAX [Concomitant]
  5. LORTAB [Concomitant]
  6. SKELAXIN [Concomitant]
  7. BEXTRA [Concomitant]
  8. ADVIL [Concomitant]
  9. ULTRAM [Concomitant]

REACTIONS (5)
  - MULTIPLE SCLEROSIS [None]
  - OPTIC ATROPHY [None]
  - OPTIC NEURITIS [None]
  - PUPILLARY DISORDER [None]
  - SCOTOMA [None]
